FAERS Safety Report 18099749 (Version 4)
Quarter: 2020Q4

REPORT INFORMATION
  Report Type: Spontaneous
  Country: US (occurrence: US)
  Receive Date: 20200731
  Receipt Date: 20201027
  Transmission Date: 20210113
  Serious: No
  Sender: FDA-Public Use
  Company Number: US-JNJFOC-20200729286

PATIENT
  Age: 36 Year
  Sex: Female
  Weight: 54.48 kg

DRUGS (3)
  1. CONCERTA [Suspect]
     Active Substance: METHYLPHENIDATE HYDROCHLORIDE
     Route: 048
     Dates: start: 20200717
  2. CONCERTA [Suspect]
     Active Substance: METHYLPHENIDATE HYDROCHLORIDE
     Route: 048
     Dates: start: 20200716
  3. CONCERTA [Suspect]
     Active Substance: METHYLPHENIDATE HYDROCHLORIDE
     Indication: PRODUCT USED FOR UNKNOWN INDICATION
     Route: 048

REACTIONS (15)
  - Product quality issue [Unknown]
  - Heart rate increased [Unknown]
  - Insomnia [Unknown]
  - Palpitations [Unknown]
  - Feeling abnormal [Unknown]
  - Fatigue [Unknown]
  - Adverse event [Unknown]
  - Neglect of personal appearance [Unknown]
  - Feeling jittery [Unknown]
  - Mydriasis [Unknown]
  - Anxiety [Unknown]
  - Overdose [Unknown]
  - Incorrect dose administered [Unknown]
  - Drug hypersensitivity [Unknown]
  - Dyspnoea [Unknown]

NARRATIVE: CASE EVENT DATE: 20200717
